FAERS Safety Report 10303853 (Version 3)
Quarter: 2015Q3

REPORT INFORMATION
  Report Type: Spontaneous
  Country: US (occurrence: US)
  Receive Date: 20140714
  Receipt Date: 20150817
  Transmission Date: 20151125
  Serious: No
  Sender: FDA-Public Use
  Company Number: US-GILEAD-2013-0084121

PATIENT
  Age: 60 Year
  Sex: Male

DRUGS (5)
  1. ADCIRCA [Concomitant]
     Active Substance: TADALAFIL
  2. LETAIRIS [Suspect]
     Active Substance: AMBRISENTAN
     Indication: SYSTEMIC SCLEROSIS
  3. LETAIRIS [Suspect]
     Active Substance: AMBRISENTAN
     Indication: SCLERODERMA
  4. LETAIRIS [Suspect]
     Active Substance: AMBRISENTAN
     Indication: PULMONARY HYPERTENSION
     Dosage: 10 MG, QD
     Route: 048
     Dates: start: 20120710
  5. REMODULIN [Concomitant]
     Active Substance: TREPROSTINIL

REACTIONS (1)
  - Flatulence [Unknown]
